FAERS Safety Report 4861373-9 (Version None)
Quarter: 2005Q4

REPORT INFORMATION
  Report Type: 
  Country: None (occurrence: None)
  Receive Date: 20051220
  Receipt Date: 20051219
  Transmission Date: 20060501
  Serious: Yes (Hospitalization)
  Sender: FDA-Public Use
  Company Number: IT-ROCHE-428872

PATIENT
  Age: 35 Year
  Sex: Male

DRUGS (3)
  1. ROCEPHIN [Suspect]
     Indication: TRACHEITIS
     Route: 030
     Dates: start: 20051125, end: 20051127
  2. AUGMENTIN [Suspect]
     Indication: TRACHEITIS
     Dosage: STRENGTH REPORTED AS 875+125 MG
     Route: 048
     Dates: start: 20051120, end: 20051126
  3. FLUENTAL [Suspect]
     Indication: DRUG USE FOR UNKNOWN INDICATION
     Route: 065
     Dates: start: 20051125, end: 20051127

REACTIONS (1)
  - STEVENS-JOHNSON SYNDROME [None]
